FAERS Safety Report 14584562 (Version 2)
Quarter: 2018Q1

REPORT INFORMATION
  Report Type: Spontaneous
  Country: DE (occurrence: DE)
  Receive Date: 20180301
  Receipt Date: 20180308
  Transmission Date: 20180509
  Serious: Yes (Hospitalization, Other)
  Sender: FDA-Public Use
  Company Number: DE-CONCORDIA PHARMACEUTICALS INC.-E2B_00010154

PATIENT
  Age: 79 Year
  Sex: Male

DRUGS (3)
  1. PREDNISOLONE. [Suspect]
     Active Substance: PREDNISOLONE
     Indication: AUTOIMMUNE HAEMOLYTIC ANAEMIA
     Dosage: OVER 4 CYCLES
     Route: 048
  2. RITUXIMAB. [Suspect]
     Active Substance: RITUXIMAB
     Indication: AUTOIMMUNE HAEMOLYTIC ANAEMIA
     Dosage: OVER 4 CYCLES
  3. BENDAMUSTINE [Suspect]
     Active Substance: BENDAMUSTINE
     Indication: AUTOIMMUNE HAEMOLYTIC ANAEMIA
     Dosage: OVER 4 CYCLES

REACTIONS (4)
  - Dyspnoea [Unknown]
  - Pneumocystis jirovecii infection [Unknown]
  - Cytomegalovirus infection [Unknown]
  - Atypical pneumonia [Recovered/Resolved]
